FAERS Safety Report 21738402 (Version 1)
Quarter: 2022Q4

REPORT INFORMATION
  Report Type: Spontaneous
  Country: FR (occurrence: FR)
  Receive Date: 20221216
  Receipt Date: 20221216
  Transmission Date: 20230112
  Serious: Yes (Other)
  Sender: FDA-Public Use
  Company Number: None

PATIENT
  Age: 37 Year
  Sex: Female

DRUGS (4)
  1. DULOXETINE HYDROCHLORIDE [Suspect]
     Active Substance: DULOXETINE HYDROCHLORIDE
     Indication: Depression
     Dosage: UNIT DOSE : 30 MG, FREQUENCY TIME : 1 DAYS, THERAPY END DATE : NASK
     Route: 065
     Dates: start: 20220422
  2. WAKIX [Suspect]
     Active Substance: PITOLISANT HYDROCHLORIDE
     Indication: Sleep disorder
     Dosage: THERAPY START DATE : NASK
     Route: 065
     Dates: end: 202211
  3. CYAMEMAZINE [Suspect]
     Active Substance: CYAMEMAZINE
     Indication: Psychotic disorder
     Dosage: 70 GTT DAILY; 10 DROPS IN THE MORNING, 10 DROPS AT NOON AND 50 DROPS IN THE EVENING, FORM STRENGTH :
     Route: 065
  4. TERALITHE [Suspect]
     Active Substance: LITHIUM CARBONATE
     Indication: Bipolar disorder
     Dosage: 1200 MILLIGRAM DAILY; PROLONGED-RELEASE SCORED TABLET, 3 TABLETS IN THE EVENING, FORM STRENGTH : 400
     Route: 065

REACTIONS (1)
  - Hepatic cytolysis [Unknown]

NARRATIVE: CASE EVENT DATE: 20221102
